FAERS Safety Report 4942787-5 (Version None)
Quarter: 2006Q1

REPORT INFORMATION
  Report Type: 
  Country: None (occurrence: None)
  Receive Date: 20060309
  Receipt Date: 20060224
  Transmission Date: 20060701
  Serious: Yes (Hospitalization)
  Sender: FDA-Public Use
  Company Number: 2006BI003472

PATIENT
  Age: 51 Year
  Sex: Female

DRUGS (4)
  1. AVONEX [Suspect]
     Indication: MULTIPLE SCLEROSIS
     Dosage: 30 UG;QW;IM
     Route: 030
     Dates: start: 20030215, end: 20040105
  2. FORADIL [Concomitant]
  3. MIZOLLEN [Concomitant]
  4. FLUNISOLIDE [Concomitant]

REACTIONS (1)
  - ACUTE ABDOMEN [None]
